FAERS Safety Report 14371412 (Version 1)
Quarter: 2018Q1

REPORT INFORMATION
  Report Type: Report from Study
  Country: CR (occurrence: CR)
  Receive Date: 20180110
  Receipt Date: 20180110
  Transmission Date: 20180509
  Serious: Yes (Other)
  Sender: FDA-Public Use
  Company Number: PHHY2018CR001827

PATIENT
  Age: 62 Year
  Sex: Female

DRUGS (1)
  1. EXFORGE [Suspect]
     Active Substance: AMLODIPINE BESYLATE\VALSARTAN
     Indication: PRODUCT USED FOR UNKNOWN INDICATION
     Dosage: 2 DF (AMLODIPINE 5 MG, VALSARTAN 320 MG), QD
     Route: 065

REACTIONS (4)
  - Blood pressure inadequately controlled [Unknown]
  - Inappropriate schedule of drug administration [Unknown]
  - Intentional overdose [Unknown]
  - Renal cancer [Unknown]
